FAERS Safety Report 16436825 (Version 1)
Quarter: 2019Q2

REPORT INFORMATION
  Report Type: Spontaneous
  Country: US (occurrence: US)
  Receive Date: 20190614
  Receipt Date: 20190614
  Transmission Date: 20190711
  Serious: Yes (Death, Life-Threatening)
  Sender: FDA-Public Use
  Company Number: US-VIFOR (INTERNATIONAL) INC.-VIT-2019-05843

PATIENT
  Age: 95 Year
  Sex: Female
  Weight: 64 kg

DRUGS (3)
  1. VENOFER [Suspect]
     Active Substance: IRON SUCROSE
     Indication: IRON DEFICIENCY
     Route: 040
     Dates: start: 20190525, end: 20190525
  2. MIRCERA [Suspect]
     Active Substance: METHOXY POLYETHYLENE GLYCOL-EPOETIN BETA
     Indication: NEPHROGENIC ANAEMIA
     Route: 040
     Dates: start: 20190525, end: 20190525
  3. VENOFER [Suspect]
     Active Substance: IRON SUCROSE
     Indication: END STAGE RENAL DISEASE

REACTIONS (1)
  - Unresponsive to stimuli [Fatal]

NARRATIVE: CASE EVENT DATE: 20190525
